FAERS Safety Report 6826667-6 (Version None)
Quarter: 2010Q3

REPORT INFORMATION
  Report Type: 
  Country: None (occurrence: None)
  Receive Date: 20100709
  Receipt Date: 20100630
  Transmission Date: 20110219
  Serious: Yes (Other)
  Sender: FDA-Public Use
  Company Number: CO-PFIZER INC-2010083123

PATIENT
  Age: 65 Year
  Sex: Female

DRUGS (5)
  1. NORVASC [Suspect]
     Indication: HYPERTENSION
     Dosage: 5 MG, 1X/DAY
     Route: 048
     Dates: start: 20090301
  2. NEBIVOLOL HCL [Suspect]
     Indication: HYPERTENSION
     Dosage: 5 MG, 1X/DAY
     Dates: start: 20091201
  3. ASPIRIN [Suspect]
     Dosage: UNK
     Dates: end: 20100610
  4. ATACAND [Suspect]
     Indication: HYPERTENSION
     Dosage: UNK
     Dates: start: 20090601, end: 20091201
  5. IRBESARTAN [Concomitant]
     Indication: HYPERTENSION
     Dosage: 225 MG, 1X/DAY
     Route: 048
     Dates: start: 20091201

REACTIONS (5)
  - ASTHMA [None]
  - DIABETES MELLITUS [None]
  - EPISTAXIS [None]
  - RED BLOOD CELL SEDIMENTATION RATE INCREASED [None]
  - TREMOR [None]
